FAERS Safety Report 8108985-7 (Version None)
Quarter: 2012Q1

REPORT INFORMATION
  Report Type: 
  Country: None (occurrence: None)
  Receive Date: 20120202
  Receipt Date: 20120120
  Transmission Date: 20120608
  Serious: Yes (Hospitalization)
  Sender: FDA-Public Use
  Company Number: US-ELI_LILLY_AND_COMPANY-US201104000891

PATIENT
  Sex: Female
  Weight: 113 kg

DRUGS (11)
  1. FORTEO [Suspect]
     Dosage: 20 UG, QD
     Route: 065
  2. FORTEO [Suspect]
     Dosage: 20 UG, QD
     Route: 065
  3. LISINOPRIL [Concomitant]
  4. SIMVASTATIN [Concomitant]
  5. GLYBURIDE [Concomitant]
  6. TYLENOL (CAPLET) [Concomitant]
     Dosage: UNK, PRN
  7. FORTEO [Suspect]
     Dosage: 20 UG, QD
     Route: 065
  8. METFORMIN HCL [Concomitant]
  9. FORTEO [Suspect]
     Indication: OSTEOPOROSIS
     Dosage: 20 UG, QD
     Route: 065
     Dates: start: 20110126
  10. FORTEO [Suspect]
     Dosage: 20 UG, QD
  11. VITAMIN D [Concomitant]
     Dosage: 50000 U, UNKNOWN

REACTIONS (8)
  - INJECTION SITE PAIN [None]
  - GROIN PAIN [None]
  - ARTHRALGIA [None]
  - BACK PAIN [None]
  - FATIGUE [None]
  - CHOLECYSTITIS [None]
  - INJECTION SITE HAEMORRHAGE [None]
  - CHOLELITHIASIS [None]
